FAERS Safety Report 17554053 (Version 2)
Quarter: 2020Q3

REPORT INFORMATION
  Report Type: Spontaneous
  Country: BR (occurrence: BR)
  Receive Date: 20200317
  Receipt Date: 20200713
  Transmission Date: 20201102
  Serious: Yes (Other)
  Sender: FDA-Public Use
  Company Number: BR-CELLTRION INC.-2019BR023020

PATIENT

DRUGS (5)
  1. REMSIMA [Suspect]
     Active Substance: INFLIXIMAB
     Dosage: UNK
     Route: 065
     Dates: start: 2018
  2. DIFENIDRIN [Concomitant]
     Active Substance: DIPHENHYDRAMINE
     Indication: PREMEDICATION
  3. PARACETAMOL [Concomitant]
     Active Substance: ACETAMINOPHEN
  4. REMSIMA [Suspect]
     Active Substance: INFLIXIMAB
     Indication: COLITIS
     Dosage: TREATMENT START DATE: MORE THAN 2 YEARS AND A HALF
     Route: 065
     Dates: start: 2016
  5. REMSIMA [Suspect]
     Active Substance: INFLIXIMAB
     Dosage: UNK
     Route: 065

REACTIONS (9)
  - Epilepsy [Unknown]
  - Adverse event [Unknown]
  - Lactose intolerance [Unknown]
  - Drug hypersensitivity [Unknown]
  - Nausea [Unknown]
  - Malaise [Unknown]
  - Palpitations [Unknown]
  - Sensitisation [Unknown]
  - Heart rate increased [Unknown]
